FAERS Safety Report 8287002-2 (Version None)
Quarter: 2012Q2

REPORT INFORMATION
  Report Type: 
  Country: None (occurrence: None)
  Receive Date: 20120416
  Receipt Date: 20120406
  Transmission Date: 20120825
  Serious: Yes (Other)
  Sender: FDA-Public Use
  Company Number: US-ASTRAZENECA-2011SE75909

PATIENT
  Age: 50 Year
  Sex: Female

DRUGS (5)
  1. PRILOSEC OTC [Suspect]
     Route: 048
  2. NEXIUM [Interacting]
     Dosage: GENERIC
     Route: 048
  3. OMEPRAZOLE [Interacting]
     Route: 048
  4. NEXIUM [Interacting]
     Route: 048
  5. EPILEPSY MEDICATION [Interacting]
     Route: 065

REACTIONS (6)
  - DRUG EFFECT DECREASED [None]
  - DRUG INTERACTION [None]
  - HAEMATEMESIS [None]
  - DRUG INEFFECTIVE [None]
  - DRUG DOSE OMISSION [None]
  - GASTRITIS [None]
